FAERS Safety Report 13017419 (Version 1)
Quarter: 2016Q4

REPORT INFORMATION
  Report Type: Spontaneous
  Country: US (occurrence: US)
  Receive Date: 20161212
  Receipt Date: 20161212
  Transmission Date: 20170207
  Serious: Yes (Death, Other)
  Sender: FDA-Public Use
  Company Number: US-OTSUKA-2016_028845

PATIENT

DRUGS (1)
  1. DECITABINE. [Suspect]
     Active Substance: DECITABINE
     Indication: PRODUCT USED FOR UNKNOWN INDICATION
     Dosage: 20 MG/M2 OF BODY-SURFACE AREA PER DAY ON DAYS 1 THROUGH 10 (CONSECUTIVE DAYS IN MONTHLY CYCLES)
     Route: 065

REACTIONS (1)
  - Cardiac arrest [Fatal]
